FAERS Safety Report 7490083-7 (Version None)
Quarter: 2011Q2

REPORT INFORMATION
  Report Type: 
  Country: None (occurrence: None)
  Receive Date: 20110519
  Receipt Date: 20110412
  Transmission Date: 20111010
  Serious: Yes (Hospitalization, Other)
  Sender: FDA-Public Use
  Company Number: US-BAYER-2010-008988

PATIENT
  Sex: Female
  Weight: 77.098 kg

DRUGS (8)
  1. YAZ [Suspect]
     Indication: CONTRACEPTION
  2. ANTIBIOTICS [Concomitant]
     Dosage: UNK
     Dates: start: 20070101
  3. YASMIN [Suspect]
     Indication: ACNE
  4. IBUPROFEN [Concomitant]
     Dosage: UNK
     Dates: start: 20070101
  5. DEPO-PROVERA [Concomitant]
  6. DROSPIRENONE AND ETHINYL ESTRADIOL [Suspect]
     Indication: ACNE
  7. YAZ [Suspect]
     Indication: ACNE
     Dosage: UNK
     Dates: start: 20070101, end: 20080101
  8. YAZ [Suspect]
     Indication: PREMENSTRUAL SYNDROME

REACTIONS (7)
  - PAIN [None]
  - CHOLELITHIASIS [None]
  - CHOLECYSTITIS [None]
  - GALLBLADDER DISORDER [None]
  - INJURY [None]
  - BILE DUCT STONE [None]
  - PANCREATITIS [None]
